FAERS Safety Report 9686061 (Version 1)
Quarter: 2013Q4

REPORT INFORMATION
  Report Type: Spontaneous
  Country: US (occurrence: US)
  Receive Date: 20131113
  Receipt Date: 20131113
  Transmission Date: 20140711
  Serious: No
  Sender: FDA-Public Use
  Company Number: US-ALLERGAN-1217260US

PATIENT
  Age: 19 Year
  Sex: Female

DRUGS (1)
  1. COMBIGAN[R] [Suspect]
     Indication: PRODUCT USED FOR UNKNOWN INDICATION
     Dosage: 1 GTT, BID
     Route: 047
     Dates: start: 20121208

REACTIONS (3)
  - Erythema [Recovered/Resolved]
  - Skin discolouration [Recovered/Resolved]
  - Eye irritation [Recovered/Resolved]
